FAERS Safety Report 11639794 (Version 1)
Quarter: 2015Q4

REPORT INFORMATION
  Report Type: Report from Study
  Country: CA (occurrence: CA)
  Receive Date: 20151019
  Receipt Date: 20151019
  Transmission Date: 20160304
  Serious: Yes (Death)
  Sender: FDA-Public Use
  Company Number: PHHY2012CA010459

PATIENT
  Age: 89 Year
  Sex: Male

DRUGS (6)
  1. NORVASC [Concomitant]
     Active Substance: AMLODIPINE BESYLATE
     Indication: PRODUCT USED FOR UNKNOWN INDICATION
     Dosage: 10 MG, QD
     Route: 065
  2. ASA [Concomitant]
     Active Substance: ASPIRIN
     Indication: PRODUCT USED FOR UNKNOWN INDICATION
     Dosage: 81 MG, QD
     Route: 065
  3. ALTACE [Concomitant]
     Active Substance: RAMIPRIL
     Indication: PRODUCT USED FOR UNKNOWN INDICATION
     Dosage: 10 MG, QD
     Route: 065
  4. APO FUROSEMIDE [Concomitant]
     Active Substance: FUROSEMIDE
     Indication: PRODUCT USED FOR UNKNOWN INDICATION
     Dosage: 40 MG, QD
     Route: 065
  5. K-DUR [Concomitant]
     Active Substance: POTASSIUM CHLORIDE
     Indication: PRODUCT USED FOR UNKNOWN INDICATION
     Dosage: 20 MEQ, QD
     Route: 065
  6. SANDOSTATIN LAR DEPOT [Suspect]
     Active Substance: OCTREOTIDE ACETATE
     Indication: NEUROENDOCRINE TUMOUR
     Dosage: 60 MG, BIW (EVERY 2 WEEKS)
     Route: 030
     Dates: start: 20090814, end: 20150922

REACTIONS (30)
  - Wound [Unknown]
  - Oedema [Unknown]
  - Rash [Unknown]
  - Injection site mass [Unknown]
  - Death [Fatal]
  - Pruritus [Unknown]
  - Decreased appetite [Unknown]
  - Injection site scar [Unknown]
  - Frequent bowel movements [Unknown]
  - Inappropriate schedule of drug administration [Unknown]
  - Blood pressure systolic increased [Not Recovered/Not Resolved]
  - Head injury [Unknown]
  - Diarrhoea [Unknown]
  - Flatulence [Unknown]
  - Incorrect dose administered [Unknown]
  - Lymphadenopathy [Unknown]
  - Peripheral swelling [Unknown]
  - Weight decreased [Unknown]
  - Dyspnoea [Unknown]
  - Gait disturbance [Unknown]
  - Haemorrhage [Unknown]
  - Eating disorder [Unknown]
  - Joint swelling [Unknown]
  - Abdominal distension [Unknown]
  - Off label use [Unknown]
  - Fall [Unknown]
  - Heart rate irregular [Unknown]
  - Oedema peripheral [Unknown]
  - Swelling [Unknown]
  - Asthenia [Unknown]

NARRATIVE: CASE EVENT DATE: 2014
